FAERS Safety Report 8101871-8 (Version None)
Quarter: 2012Q1

REPORT INFORMATION
  Report Type: 
  Country: None (occurrence: None)
  Receive Date: 20120131
  Receipt Date: 20120127
  Transmission Date: 20120608
  Serious: Yes (Hospitalization)
  Sender: FDA-Public Use
  Company Number: PHHY2012ZA007347

PATIENT
  Age: 81 Year
  Sex: Male

DRUGS (1)
  1. ZOLEDRONOC ACID [Suspect]
     Dosage: 5 MG, YEARLY
     Route: 042
     Dates: start: 20100701

REACTIONS (4)
  - NERVE COMPRESSION [None]
  - MUSCLE SPASMS [None]
  - SPINAL FUSION ACQUIRED [None]
  - GAIT DISTURBANCE [None]
